FAERS Safety Report 16997470 (Version 2)
Quarter: 2019Q4

REPORT INFORMATION
  Report Type: Spontaneous
  Country: US (occurrence: US)
  Receive Date: 20191106
  Receipt Date: 20191126
  Transmission Date: 20200122
  Serious: Yes (Other)
  Sender: FDA-Public Use
  Company Number: US-LUPIN PHARMACEUTICALS INC.-2019-07078

PATIENT
  Age: 62 Year
  Sex: Female

DRUGS (2)
  1. IMATINIB MESYLATE. [Suspect]
     Active Substance: IMATINIB MESYLATE
     Dosage: 250 MILLIGRAM, QD
     Route: 065
  2. IMATINIB MESYLATE. [Suspect]
     Active Substance: IMATINIB MESYLATE
     Indication: GASTROINTESTINAL STROMAL TUMOUR
     Dosage: 400 MILLIGRAM, QD
     Route: 065

REACTIONS (2)
  - Rash maculo-papular [Unknown]
  - Periorbital swelling [Recovering/Resolving]
